FAERS Safety Report 10880851 (Version 1)
Quarter: 2015Q1

REPORT INFORMATION
  Report Type: Spontaneous
  Country: US (occurrence: None)
  Receive Date: 20150225
  Receipt Date: 20150225
  Transmission Date: 20150721
  Serious: Yes (Hospitalization)
  Sender: FDA-Public Use
  Company Number: None

PATIENT
  Sex: Female
  Weight: 93.75 kg

DRUGS (14)
  1. RANITIDINE [Concomitant]
     Active Substance: RANITIDINE\RANITIDINE HYDROCHLORIDE
  2. ELAVIL [Concomitant]
     Active Substance: AMITRIPTYLINE HYDROCHLORIDE
  3. NEURONTIN [Concomitant]
     Active Substance: GABAPENTIN
  4. LINZESS [Concomitant]
     Active Substance: LINACLOTIDE
  5. DURAGESIC [Concomitant]
     Active Substance: FENTANYL
  6. MOBIC [Concomitant]
     Active Substance: MELOXICAM
  7. SENNA LAXATIVE [Concomitant]
     Active Substance: SENNOSIDES A AND B
  8. COLACE [Concomitant]
     Active Substance: DOCUSATE SODIUM
  9. PROTONIX [Concomitant]
     Active Substance: PANTOPRAZOLE SODIUM
  10. RIBAVIRIN. [Suspect]
     Active Substance: RIBAVIRIN
     Indication: HEPATITIS C
     Route: 048
     Dates: start: 20150120
  11. SOFOSBUVIR 400 MG GILEAD [Suspect]
     Active Substance: SOFOSBUVIR
     Indication: HEPATITIS C
     Route: 048
     Dates: start: 20150120
  12. INTERFERON [Concomitant]
     Active Substance: INTERFERON
  13. MICROZIDE [Concomitant]
     Active Substance: HYDROCHLOROTHIAZIDE
  14. MIRALAX [Concomitant]
     Active Substance: POLYETHYLENE GLYCOL 3350

REACTIONS (6)
  - Vomiting [None]
  - Nausea [None]
  - Hypophagia [None]
  - Syncope [None]
  - Haemolytic anaemia [None]
  - Hypovolaemia [None]

NARRATIVE: CASE EVENT DATE: 20140210
